FAERS Safety Report 12725097 (Version 1)
Quarter: 2016Q3

REPORT INFORMATION
  Report Type: Spontaneous
  Country: ZA (occurrence: ZA)
  Receive Date: 20160908
  Receipt Date: 20160908
  Transmission Date: 20161109
  Serious: Yes (Hospitalization)
  Sender: FDA-Public Use
  Company Number: ZA-BAYER-2016-174104

PATIENT
  Age: 39 Year
  Sex: Female
  Weight: 89 kg

DRUGS (1)
  1. MIRENA [Suspect]
     Active Substance: LEVONORGESTREL
     Dosage: 20 MCG/24HR, CONT
     Route: 015
     Dates: start: 20160623

REACTIONS (1)
  - Seizure [Recovered/Resolved with Sequelae]

NARRATIVE: CASE EVENT DATE: 20160823
